FAERS Safety Report 11758227 (Version 1)
Quarter: 2015Q4

REPORT INFORMATION
  Report Type: Report from Study
  Country: US (occurrence: US)
  Receive Date: 20151120
  Receipt Date: 20151120
  Transmission Date: 20160304
  Serious: Yes (Other)
  Sender: FDA-Public Use
  Company Number: US-WARNER CHILCOTT, LLC-1044466

PATIENT
  Age: 58 Year
  Sex: Female

DRUGS (2)
  1. REMICADE [Suspect]
     Active Substance: INFLIXIMAB
     Route: 042
     Dates: start: 201501, end: 201503
  2. ASACOL HD [Suspect]
     Active Substance: MESALAMINE
     Indication: COLITIS ULCERATIVE
     Dates: start: 201309

REACTIONS (6)
  - Pneumonia [Recovered/Resolved]
  - Dyspnoea [None]
  - Myalgia [Recovered/Resolved]
  - Muscle spasms [Unknown]
  - Arthralgia [Recovered/Resolved]
  - Pain [Unknown]
